FAERS Safety Report 7239382-4 (Version None)
Quarter: 2011Q1

REPORT INFORMATION
  Report Type: 
  Country: None (occurrence: None)
  Receive Date: 20110121
  Receipt Date: 20110114
  Transmission Date: 20110831
  Serious: Yes (Other)
  Sender: FDA-Public Use
  Company Number: CA-PFIZER INC-2011003990

PATIENT
  Age: 44 Year
  Sex: Male

DRUGS (8)
  1. VITAMIN D [Concomitant]
     Dosage: UNK
  2. RANITIDINE [Concomitant]
     Dosage: 150 MG, 2X/DAY
  3. LORAZEPAM [Concomitant]
     Dosage: 0.5 MG, UNK
  4. TOPIRAMATE [Concomitant]
     Dosage: 100 MG, 2X/DAY
  5. CLOBAZAM [Concomitant]
     Dosage: 25 MG, UNK
  6. DILANTIN [Suspect]
     Dosage: 200 MG, 2X/DAY
  7. DOMPERIDONE [Concomitant]
     Dosage: 10 MG, 3X/DAY
  8. BACLOFEN [Concomitant]
     Dosage: 20 MG, 2X/DAY

REACTIONS (4)
  - DRUG INEFFECTIVE [None]
  - ANTICONVULSANT DRUG LEVEL INCREASED [None]
  - ANTICONVULSANT DRUG LEVEL DECREASED [None]
  - CONVULSION [None]
